FAERS Safety Report 12643251 (Version 1)
Quarter: 2016Q3

REPORT INFORMATION
  Report Type: Spontaneous
  Country: US (occurrence: US)
  Receive Date: 20160811
  Receipt Date: 20160811
  Transmission Date: 20161109
  Serious: No
  Sender: FDA-Public Use
  Company Number: US-GLENMARK PHARMACEUTICALS INC, USA.-2015GMK019161

PATIENT

DRUGS (2)
  1. ONDANSETRON HYDROCHLORIDE TABLETS [Suspect]
     Active Substance: ONDANSETRON HYDROCHLORIDE
     Dosage: BID OR TID, PRN
     Route: 058
     Dates: start: 20150823, end: 20150824
  2. ONDANSETRON HYDROCHLORIDE TABLETS [Suspect]
     Active Substance: ONDANSETRON HYDROCHLORIDE
     Indication: NAUSEA
     Dosage: BID OR TID, PRN
     Route: 058
     Dates: start: 20150727

REACTIONS (3)
  - Product blister packaging issue [Unknown]
  - Product taste abnormal [Unknown]
  - Dysgeusia [Unknown]

NARRATIVE: CASE EVENT DATE: 20150727
